FAERS Safety Report 17566615 (Version 1)
Quarter: 2020Q1

REPORT INFORMATION
  Report Type: Report from Study
  Country: US (occurrence: US)
  Receive Date: 20200320
  Receipt Date: 20200320
  Transmission Date: 20200409
  Serious: No
  Sender: FDA-Public Use
  Company Number: US-KYOWAKIRIN-2020BKK004325

PATIENT

DRUGS (1)
  1. CRYSVITA [Suspect]
     Active Substance: BUROSUMAB-TWZA
     Indication: PRODUCT USED FOR UNKNOWN INDICATION
     Dosage: 6 MG, ONCE EVERY 14 DAYS
     Route: 065

REACTIONS (3)
  - Respiratory syncytial virus infection [Unknown]
  - Ear infection [Unknown]
  - Underdose [Unknown]

NARRATIVE: CASE EVENT DATE: 20200304
